FAERS Safety Report 4841741-1 (Version None)
Quarter: 2005Q4

REPORT INFORMATION
  Report Type: 
  Country: None (occurrence: None)
  Receive Date: 20051130
  Receipt Date: 20051121
  Transmission Date: 20060501
  Serious: Yes (Hospitalization)
  Sender: FDA-Public Use
  Company Number: PHRM2005FR03025

PATIENT
  Sex: Male

DRUGS (6)
  1. STALEVO 100 [Suspect]
     Indication: PARKINSON'S DISEASE
     Dosage: 200/50/12.5 MG X 5/DAY
     Route: 048
     Dates: start: 20050501
  2. PARLODEL [Suspect]
     Indication: PARKINSON'S DISEASE
     Dosage: UNK, UNK
     Route: 048
     Dates: end: 20050501
  3. MODOPAR [Concomitant]
     Dosage: 25/100 MG X5/DAY
     Route: 048
     Dates: start: 20050501
  4. MODOPAR [Concomitant]
     Route: 048
     Dates: end: 20050501
  5. REQUIP [Concomitant]
     Dosage: 10 TAB/DAY
     Route: 048
     Dates: start: 20050501
  6. SINEMET [Concomitant]
     Dosage: 1 DF, QD
     Route: 048
     Dates: start: 20050501

REACTIONS (5)
  - ANAEMIA [None]
  - FATIGUE [None]
  - HAEMOGLOBIN DECREASED [None]
  - PALLOR [None]
  - RED BLOOD CELL COUNT DECREASED [None]
